FAERS Safety Report 23640388 (Version 2)
Quarter: 2024Q2

REPORT INFORMATION
  Report Type: Report from Study
  Country: US (occurrence: US)
  Receive Date: 20240317
  Receipt Date: 20240511
  Transmission Date: 20240716
  Serious: Yes (Other)
  Sender: FDA-Public Use
  Company Number: US-ABBVIE-5679137

PATIENT
  Age: 64 Year
  Sex: Male

DRUGS (1)
  1. RINVOQ [Suspect]
     Active Substance: UPADACITINIB
     Indication: Product used for unknown indication
     Route: 048
     Dates: start: 20231101

REACTIONS (4)
  - Coronary arterial stent insertion [Unknown]
  - Blister [Not Recovered/Not Resolved]
  - Device allergy [Unknown]
  - Dermatitis [Unknown]

NARRATIVE: CASE EVENT DATE: 20240401
